FAERS Safety Report 13071741 (Version 1)
Quarter: 2016Q4

REPORT INFORMATION
  Report Type: Spontaneous
  Country: IT (occurrence: IT)
  Receive Date: 20161229
  Receipt Date: 20161229
  Transmission Date: 20170207
  Serious: Yes (Death, Hospitalization)
  Sender: FDA-Public Use
  Company Number: IT-JNJFOC-20161219405

PATIENT
  Age: 92 Year
  Sex: Male

DRUGS (2)
  1. TACHIPIRINA [Concomitant]
     Active Substance: ACETAMINOPHEN
     Route: 065
  2. XARELTO [Suspect]
     Active Substance: RIVAROXABAN
     Indication: PRODUCT USED FOR UNKNOWN INDICATION
     Route: 048
     Dates: start: 20160218, end: 20160304

REACTIONS (2)
  - Cerebral haemorrhage [Fatal]
  - Dry mouth [Fatal]

NARRATIVE: CASE EVENT DATE: 20160301
